FAERS Safety Report 4922213-2 (Version None)
Quarter: 2006Q1

REPORT INFORMATION
  Report Type: 
  Country: None (occurrence: None)
  Receive Date: 20060224
  Receipt Date: 20051005
  Transmission Date: 20060701
  Serious: Yes (Hospitalization)
  Sender: FDA-Public Use
  Company Number: US-MERCK-0510USA04848

PATIENT
  Age: 39 Year
  Sex: Male
  Weight: 100 kg

DRUGS (4)
  1. VIOXX [Suspect]
     Indication: JOINT SPRAIN
     Route: 048
     Dates: start: 20030701, end: 20031001
  2. VIOXX [Suspect]
     Route: 048
     Dates: start: 20030701, end: 20031001
  3. VICODIN [Concomitant]
     Indication: PAIN
     Route: 065
     Dates: start: 20030701, end: 20030101
  4. ZESTRIL [Concomitant]
     Indication: HYPERTENSION
     Route: 065
     Dates: start: 19990101

REACTIONS (8)
  - CARDIAC DISORDER [None]
  - CARDIAC FAILURE CONGESTIVE [None]
  - CARDIOMYOPATHY [None]
  - DEHYDRATION [None]
  - DEPRESSION [None]
  - JOINT EFFUSION [None]
  - POST-TRAUMATIC STRESS DISORDER [None]
  - SLEEP APNOEA SYNDROME [None]
